FAERS Safety Report 8885533 (Version 1)
Quarter: 2012Q4

REPORT INFORMATION
  Report Type: 
  Country: US (occurrence: US)
  Receive Date: 20121101
  Receipt Date: 20121101
  Transmission Date: 20130627
  Serious: Yes (Other)
  Sender: FDA-Public Use
  Company Number: US-PFIZER INC-2012269989

PATIENT
  Age: 71 Year
  Sex: Female

DRUGS (2)
  1. REVATIO [Suspect]
     Dosage: UNK
     Route: 048
  2. LETAIRIS [Suspect]
     Indication: CHRONIC PULMONARY HEART DISEASE
     Dosage: 5 mg, 1x/day
     Route: 048
     Dates: start: 20120721

REACTIONS (3)
  - Chronic obstructive pulmonary disease [Unknown]
  - Flushing [Unknown]
  - Hot flush [Unknown]
